FAERS Safety Report 4702649-5 (Version None)
Quarter: 2005Q2

REPORT INFORMATION
  Report Type: 
  Country: None (occurrence: None)
  Receive Date: 20050629
  Receipt Date: 20040826
  Transmission Date: 20051028
  Serious: No
  Sender: FDA-Public Use
  Company Number: US-GLAXOSMITHKLINE-A0523656A

PATIENT
  Age: 20 Year
  Sex: Female
  Weight: 57.3 kg

DRUGS (2)
  1. ZYBAN [Suspect]
     Dosage: 150MG TWICE PER DAY
     Route: 048
     Dates: start: 20031201, end: 20040203
  2. METRONIDAZOLE [Suspect]
     Indication: BACTERIAL INFECTION
     Dosage: 500MG UNKNOWN
     Route: 048
     Dates: start: 20040129, end: 20040203

REACTIONS (4)
  - BACTERIAL INFECTION [None]
  - DRUG INTERACTION [None]
  - FLUSHING [None]
  - TACHYCARDIA [None]
